FAERS Safety Report 16305283 (Version 1)
Quarter: 2019Q2

REPORT INFORMATION
  Report Type: Report from Study
  Country: CA (occurrence: CA)
  Receive Date: 20190513
  Receipt Date: 20190513
  Transmission Date: 20190711
  Serious: Yes (Hospitalization, Other)
  Sender: FDA-Public Use
  Company Number: CA-JNJFOC-20190511115

PATIENT
  Age: 34 Year
  Sex: Female
  Weight: 106 kg

DRUGS (1)
  1. REMICADE [Suspect]
     Active Substance: INFLIXIMAB
     Indication: CROHN^S DISEASE
     Dosage: STRENGTH = 100 MG
     Route: 042
     Dates: start: 200911

REACTIONS (4)
  - Hysterectomy [Unknown]
  - Prolapse repair [Unknown]
  - Urinary bladder suspension [Unknown]
  - Cystitis [Unknown]

NARRATIVE: CASE EVENT DATE: 201903
